FAERS Safety Report 25572471 (Version 1)
Quarter: 2025Q3

REPORT INFORMATION
  Report Type: Spontaneous
  Country: US (occurrence: None)
  Receive Date: 20250717
  Receipt Date: 20250717
  Transmission Date: 20251021
  Serious: No
  Sender: FDA-CTU
  Company Number: None

PATIENT
  Age: 47 Year
  Sex: Female
  Weight: 74.7 kg

DRUGS (9)
  1. SUBLOCADE [Suspect]
     Active Substance: BUPRENORPHINE
     Indication: Drug use disorder
     Dates: start: 20240506
  2. QELBREE [Concomitant]
     Active Substance: VILOXAZINE HYDROCHLORIDE
  3. FLUOXETINE [Concomitant]
     Active Substance: FLUOXETINE HYDROCHLORIDE
  4. CARIPRAZINE [Concomitant]
     Active Substance: CARIPRAZINE
  5. LUBIPROSTONE [Concomitant]
     Active Substance: LUBIPROSTONE
  6. SPRINTEC [Concomitant]
     Active Substance: ETHINYL ESTRADIOL\NORGESTIMATE
  7. NALOXONE [Concomitant]
     Active Substance: NALOXONE
  8. LEVOTHYROXINE [Concomitant]
     Active Substance: LEVOTHYROXINE
  9. PANTOPRAZOLE [Concomitant]
     Active Substance: PANTOPRAZOLE

REACTIONS (2)
  - Withdrawal syndrome [None]
  - Injection site pain [None]
